FAERS Safety Report 19132183 (Version 1)
Quarter: 2021Q2

REPORT INFORMATION
  Report Type: Spontaneous
  Country: US (occurrence: US)
  Receive Date: 20210413
  Receipt Date: 20210413
  Transmission Date: 20210717
  Serious: Yes (Hospitalization)
  Sender: FDA-Public Use
  Company Number: US-TEVA-2021-US-1897973

PATIENT
  Sex: Female

DRUGS (13)
  1. GINKO BILOBA [Concomitant]
     Active Substance: GINKGO
  2. VITAMIN D3 DROPS [Concomitant]
  3. ZYRTEC [Concomitant]
     Active Substance: CETIRIZINE HYDROCHLORIDE
  4. ZINC. [Concomitant]
     Active Substance: ZINC
  5. AUSTEDO [Suspect]
     Active Substance: DEUTETRABENAZINE
     Indication: HUNTINGTON^S DISEASE
     Dosage: 24 MILLIGRAM DAILY;
     Route: 048
  6. CLONIDINE. [Concomitant]
     Active Substance: CLONIDINE
  7. MAGNESIUM [Concomitant]
     Active Substance: MAGNESIUM
  8. LORATADINE. [Concomitant]
     Active Substance: LORATADINE
  9. TYLENOL 35MG [Concomitant]
  10. TRAZODONE [Concomitant]
     Active Substance: TRAZODONE HYDROCHLORIDE
  11. LATUDA [Concomitant]
     Active Substance: LURASIDONE HYDROCHLORIDE
  12. VITAMINA D3 [Concomitant]
     Active Substance: CHOLECALCIFEROL
  13. FISH OIL [Concomitant]
     Active Substance: FISH OIL

REACTIONS (4)
  - Bowel movement irregularity [Unknown]
  - Diarrhoea [Unknown]
  - Soft tissue excision [Unknown]
  - Fall [Unknown]
